FAERS Safety Report 13872742 (Version 3)
Quarter: 2018Q2

REPORT INFORMATION
  Report Type: Report from Study
  Country: US (occurrence: US)
  Receive Date: 20170816
  Receipt Date: 20180518
  Transmission Date: 20180711
  Serious: Yes (Life-Threatening, Other)
  Sender: FDA-Public Use
  Company Number: US-ROCHE-1977524

PATIENT
  Sex: Female

DRUGS (6)
  1. CELLCEPT [Suspect]
     Active Substance: MYCOPHENOLATE MOFETIL\MYCOPHENOLATE MOFETIL HYDROCHLORIDE
     Indication: PEMPHIGUS
     Dosage: NOTE STATES 2.0 GM. DAILY-NO ADDITIONAL INFORMATIO
     Route: 048
     Dates: start: 201408
  2. CELLCEPT [Suspect]
     Active Substance: MYCOPHENOLATE MOFETIL\MYCOPHENOLATE MOFETIL HYDROCHLORIDE
     Dosage: 500 MG
     Route: 048
  3. RITUXAN [Suspect]
     Active Substance: RITUXIMAB
     Indication: PEMPHIGUS
     Dosage: NOT REPORTED
     Route: 065
  4. CELLCEPT [Suspect]
     Active Substance: MYCOPHENOLATE MOFETIL\MYCOPHENOLATE MOFETIL HYDROCHLORIDE
     Route: 048
  5. CELLCEPT [Suspect]
     Active Substance: MYCOPHENOLATE MOFETIL\MYCOPHENOLATE MOFETIL HYDROCHLORIDE
     Dosage: 500MG 2 TABS BID
     Route: 048
  6. CELLCEPT [Suspect]
     Active Substance: MYCOPHENOLATE MOFETIL\MYCOPHENOLATE MOFETIL HYDROCHLORIDE
     Route: 048

REACTIONS (29)
  - Pemphigoid [Unknown]
  - Feeling abnormal [Unknown]
  - Perichondritis [Unknown]
  - Ill-defined disorder [Unknown]
  - Psychotic disorder [Unknown]
  - Pruritus [Unknown]
  - Rash [Unknown]
  - Suicidal behaviour [Unknown]
  - Treatment failure [Unknown]
  - Hyperkeratosis [Unknown]
  - Mass [Unknown]
  - Skin discolouration [Unknown]
  - Pain [Unknown]
  - Eye ulcer [Unknown]
  - Off label use [Unknown]
  - Burning sensation [Unknown]
  - Haemangioma [Unknown]
  - Gingival bleeding [Unknown]
  - Cyst removal [Unknown]
  - Vomiting [Unknown]
  - Limb mass [Unknown]
  - Abdominal pain [Unknown]
  - Intentional product use issue [Unknown]
  - Nausea [Unknown]
  - Pustular psoriasis [Unknown]
  - Solar lentigo [Unknown]
  - Peripheral swelling [Unknown]
  - Oropharyngeal pain [Unknown]
  - Blister [Unknown]
